FAERS Safety Report 11860624 (Version 1)
Quarter: 2015Q4

REPORT INFORMATION
  Report Type: Spontaneous
  Country: US (occurrence: US)
  Receive Date: 20151222
  Receipt Date: 20151222
  Transmission Date: 20160305
  Serious: Yes (Hospitalization, Other)
  Sender: FDA-Public Use
  Company Number: US-MYLANLABS-2015M1044901

PATIENT

DRUGS (1)
  1. CLONAZEPAM TABLETS, USP [Suspect]
     Active Substance: CLONAZEPAM
     Indication: ANXIETY
     Dosage: 0.5 MG, QD
     Route: 048
     Dates: start: 2012

REACTIONS (4)
  - Loss of consciousness [Recovered/Resolved]
  - Drug ineffective [Not Recovered/Not Resolved]
  - Throat irritation [Not Recovered/Not Resolved]
  - Impaired driving ability [Recovered/Resolved]

NARRATIVE: CASE EVENT DATE: 2015
